FAERS Safety Report 7224879-3 (Version None)
Quarter: 2011Q1

REPORT INFORMATION
  Report Type: 
  Country: None (occurrence: None)
  Receive Date: 20110113
  Receipt Date: 20110107
  Transmission Date: 20110831
  Serious: Yes (Hospitalization)
  Sender: FDA-Public Use
  Company Number: DE-ROCHE-751817

PATIENT
  Sex: Female
  Weight: 83 kg

DRUGS (14)
  1. TRASTUZUMAB [Suspect]
     Route: 042
     Dates: start: 20101130, end: 20101229
  2. ACYCLOVIR [Concomitant]
     Dates: start: 20101221
  3. DOCETAXEL [Suspect]
     Dosage: DOSE FORM- VIAL, DOSE LEVEL- 75 MG/M2
     Route: 042
     Dates: start: 20100928, end: 20101109
  4. OXYCODONE [Concomitant]
     Dates: start: 20101107
  5. BEVACIZUMAB [Suspect]
     Dosage: DOSE FORM- VIAL, DOSE LEVEL -15 MG/KG
     Route: 042
     Dates: start: 20100928, end: 20101109
  6. PREGABALIN [Concomitant]
     Dates: start: 20101107
  7. TRASTUZUMAB [Suspect]
     Dosage: LOADING DOSE, DOSE FORM- VIAL,
     Route: 042
     Dates: start: 20100928
  8. TRASTUZUMAB [Suspect]
     Dosage: DOSE LEVEL : 6 MG/KG
     Route: 042
     Dates: end: 20101109
  9. CARBOPLATIN [Suspect]
     Route: 042
     Dates: start: 20101130, end: 20101229
  10. DOCETAXEL [Suspect]
     Route: 042
     Dates: start: 20101130, end: 20101229
  11. PANTOPRAZOLE [Concomitant]
     Dates: start: 20101101
  12. BEVACIZUMAB [Suspect]
     Dosage: LAST DOSE PRIOR SAE: 19 OCT 2010, PERMANENTLY DISCONTINUED.
     Route: 042
     Dates: end: 20101229
  13. CARBOPLATIN [Suspect]
     Dosage: DOSE FORM- VIAL, DOSE LEVEL : 6 AUC
     Route: 042
     Dates: start: 20100928, end: 20101109
  14. CANDESARTAN [Concomitant]
     Dosage: TOTAL DAILY DOSE : 16/9 MG
     Dates: start: 20080801

REACTIONS (1)
  - PULMONARY EMBOLISM [None]
